FAERS Safety Report 15210160 (Version 1)
Quarter: 2018Q3

REPORT INFORMATION
  Report Type: Spontaneous
  Country: US (occurrence: US)
  Receive Date: 20180727
  Receipt Date: 20180727
  Transmission Date: 20181010
  Serious: No
  Sender: FDA-Public Use
  Company Number: US-009507513-1807USA011663

PATIENT
  Age: 17 Year
  Sex: Female
  Weight: 50.79 kg

DRUGS (4)
  1. ADDERALL [Concomitant]
     Active Substance: AMPHETAMINE ASPARTATE\AMPHETAMINE SULFATE\DEXTROAMPHETAMINE SACCHARATE\DEXTROAMPHETAMINE SULFATE
  2. NEXPLANON [Suspect]
     Active Substance: ETONOGESTREL
     Indication: HYPOMENORRHOEA
     Dosage: 1IMPLANT, 3 YEAR IMPLANT, INSIDE THE LEFT ARM
     Route: 059
     Dates: start: 20180720
  3. NEXPLANON [Suspect]
     Active Substance: ETONOGESTREL
     Indication: CONTRACEPTION
  4. TRAZODONE HYDROCHLORIDE. [Concomitant]
     Active Substance: TRAZODONE HYDROCHLORIDE

REACTIONS (1)
  - Product use in unapproved indication [Not Recovered/Not Resolved]
